FAERS Safety Report 9292640 (Version 1)
Quarter: 2013Q2

REPORT INFORMATION
  Report Type: Report from Study
  Country: DE (occurrence: DE)
  Receive Date: 20130516
  Receipt Date: 20130516
  Transmission Date: 20140414
  Serious: Yes (Death, Hospitalization)
  Sender: FDA-Public Use
  Company Number: DE-SANOFI-AVENTIS-2013SA045096

PATIENT
  Age: 67 Year
  Sex: Male
  Weight: 59 kg

DRUGS (8)
  1. DOCETAXEL [Suspect]
     Indication: SQUAMOUS CELL CARCINOMA OF HEAD AND NECK
     Route: 041
     Dates: start: 20130325, end: 20130325
  2. DOCETAXEL [Suspect]
     Indication: SQUAMOUS CELL CARCINOMA OF HEAD AND NECK
     Route: 041
     Dates: start: 20130422, end: 20130422
  3. CETUXIMAB [Suspect]
     Indication: SQUAMOUS CELL CARCINOMA OF HEAD AND NECK
     Route: 041
     Dates: start: 20130325, end: 20130325
  4. CETUXIMAB [Suspect]
     Indication: SQUAMOUS CELL CARCINOMA OF HEAD AND NECK
     Route: 041
     Dates: start: 20130422, end: 20130422
  5. CISPLATIN [Suspect]
     Indication: SQUAMOUS CELL CARCINOMA OF HEAD AND NECK
     Route: 041
     Dates: start: 20130325, end: 20130325
  6. CISPLATIN [Suspect]
     Indication: SQUAMOUS CELL CARCINOMA OF HEAD AND NECK
     Route: 041
     Dates: start: 20130422, end: 20130422
  7. 5-FU [Suspect]
     Indication: SQUAMOUS CELL CARCINOMA OF HEAD AND NECK
     Route: 041
     Dates: start: 20130325, end: 20130325
  8. 5-FU [Suspect]
     Indication: SQUAMOUS CELL CARCINOMA OF HEAD AND NECK
     Route: 041
     Dates: start: 20130422, end: 20130422

REACTIONS (4)
  - Arterial haemorrhage [Fatal]
  - Tracheitis [Fatal]
  - General physical health deterioration [Fatal]
  - Neutropenia [Not Recovered/Not Resolved]
